FAERS Safety Report 23891272 (Version 1)
Quarter: 2024Q2

REPORT INFORMATION
  Report Type: Spontaneous
  Country: GR (occurrence: GR)
  Receive Date: 20240523
  Receipt Date: 20240523
  Transmission Date: 20240716
  Serious: Yes (Life-Threatening)
  Sender: FDA-Public Use
  Company Number: None

PATIENT
  Age: 76 Year
  Sex: Male
  Weight: 60 kg

DRUGS (2)
  1. RISPERDAL [Suspect]
     Active Substance: RISPERIDONE
     Indication: Dementia
     Route: 048
     Dates: start: 202402
  2. NEPEZIL [Concomitant]
     Indication: Dementia
     Route: 048

REACTIONS (3)
  - Dysphagia [Not Recovered/Not Resolved]
  - Cerebrovascular accident [Not Recovered/Not Resolved]
  - Decreased appetite [Not Recovered/Not Resolved]
